FAERS Safety Report 23228572 (Version 1)
Quarter: 2023Q4

REPORT INFORMATION
  Report Type: Spontaneous
  Country: US (occurrence: US)
  Receive Date: 20231125
  Receipt Date: 20231125
  Transmission Date: 20240110
  Serious: Yes (Hospitalization)
  Sender: FDA-Public Use
  Company Number: US-STRIDES ARCOLAB LIMITED-2023SP017506

PATIENT
  Age: 34 Year
  Sex: Male

DRUGS (6)
  1. AMANTADINE [Suspect]
     Active Substance: AMANTADINE
     Indication: Fatigue
     Dosage: 100 MILLIGRAM, BID
     Route: 065
  2. AMANTADINE [Suspect]
     Active Substance: AMANTADINE
     Indication: Multiple sclerosis
  3. INSULIN GLARGINE [Suspect]
     Active Substance: INSULIN GLARGINE
     Indication: Type 1 diabetes mellitus
     Dosage: 28 IU INTERNATIONAL UNIT(S) DAILY
     Route: 065
  4. INSULIN GLARGINE [Suspect]
     Active Substance: INSULIN GLARGINE
     Dosage: 24 IU INTERNATIONAL UNIT(S) DAILY
     Route: 065
  5. INSULIN LISPRO [Suspect]
     Active Substance: INSULIN LISPRO
     Indication: Type 1 diabetes mellitus
     Dosage: 10 IU INTERNATIONAL UNIT(S) (BEFORE MEALS )
     Route: 065
  6. INSULIN LISPRO [Suspect]
     Active Substance: INSULIN LISPRO
     Dosage: 10 IU INTERNATIONAL UNIT(S)
     Route: 065

REACTIONS (2)
  - Hypoglycaemia [Recovered/Resolved]
  - Off label use [Unknown]
